FAERS Safety Report 13461689 (Version 12)
Quarter: 2018Q2

REPORT INFORMATION
  Report Type: Report from Study
  Country: CA (occurrence: CA)
  Receive Date: 20170420
  Receipt Date: 20180621
  Transmission Date: 20180711
  Serious: Yes (Hospitalization, Other)
  Sender: FDA-Public Use
  Company Number: CA-GLAXOSMITHKLINE-CA2017GSK054404

PATIENT
  Age: 68 Year
  Sex: Male

DRUGS (11)
  1. PREDNISONE. [Concomitant]
     Active Substance: PREDNISONE
     Indication: ASTHMA
     Dosage: UNK
  2. SALBUTAMOL SULPHATE [Suspect]
     Active Substance: ALBUTEROL SULFATE
     Indication: PRODUCT USED FOR UNKNOWN INDICATION
     Dosage: UNK
  3. NUCALA [Suspect]
     Active Substance: MEPOLIZUMAB
     Dosage: 100 MG, Z
     Route: 042
  4. NUCALA [Suspect]
     Active Substance: MEPOLIZUMAB
     Dosage: 100 MG, Z
     Route: 042
  5. FLONASE [Suspect]
     Active Substance: FLUTICASONE PROPIONATE
     Indication: PRODUCT USED FOR UNKNOWN INDICATION
     Dosage: UNK
  6. NUCALA [Suspect]
     Active Substance: MEPOLIZUMAB
     Dosage: 100 MG,Z, (100 MG MONTHLY)
     Route: 042
     Dates: start: 20171130
  7. NUCALA [Suspect]
     Active Substance: MEPOLIZUMAB
     Dosage: 100 MG, Z
     Route: 042
     Dates: start: 20170907
  8. NUCALA [Suspect]
     Active Substance: MEPOLIZUMAB
     Dosage: 100 MG, Z
     Route: 042
  9. NUCYNTA [Suspect]
     Active Substance: TAPENTADOL HYDROCHLORIDE
     Indication: HERNIA
     Dosage: 2 DF, BID
  10. NUCYNTA [Suspect]
     Active Substance: TAPENTADOL HYDROCHLORIDE
     Indication: ARTHRITIS
     Dosage: 50 MG, TID
  11. NUCALA [Suspect]
     Active Substance: MEPOLIZUMAB
     Indication: ASTHMA
     Dosage: 100 MG, Z (MONTHLY)
     Route: 042

REACTIONS (23)
  - Spinal disorder [Unknown]
  - Intervertebral disc protrusion [Unknown]
  - Hypersomnia [Unknown]
  - Arthritis [Unknown]
  - Hypoaesthesia [Unknown]
  - Gastrooesophageal reflux disease [Unknown]
  - Paraesthesia [Unknown]
  - Cough [Recovering/Resolving]
  - Influenza [Unknown]
  - Insomnia [Not Recovered/Not Resolved]
  - Back pain [Not Recovered/Not Resolved]
  - Pneumonia [Unknown]
  - Gastrointestinal disorder [Not Recovered/Not Resolved]
  - Muscular weakness [Unknown]
  - Dyspnoea [Not Recovered/Not Resolved]
  - Productive cough [Recovering/Resolving]
  - Fatigue [Not Recovered/Not Resolved]
  - Lung infection [Unknown]
  - Asthma [Unknown]
  - Peripheral swelling [Unknown]
  - Hernia pain [Unknown]
  - Cerebrovascular accident [Unknown]
  - Cataract [Unknown]

NARRATIVE: CASE EVENT DATE: 201712
